FAERS Safety Report 5285168-X (Version None)
Quarter: 2007Q2

REPORT INFORMATION
  Report Type: 
  Country: None (occurrence: None)
  Receive Date: 20070403
  Receipt Date: 20070322
  Transmission Date: 20071010
  Serious: Yes (Other)
  Sender: FDA-Public Use
  Company Number: FR-PFIZER INC-2007005011

PATIENT
  Sex: Male
  Weight: 70 kg

DRUGS (5)
  1. RELPAX [Suspect]
     Indication: MIGRAINE
     Route: 048
  2. ESOMEPRAZOLE MAGNESIUM [Concomitant]
     Route: 048
  3. TAMSULOSIN HCL [Concomitant]
     Route: 048
  4. FLUTICASONE PROPIONATE [Concomitant]
     Route: 048
  5. FENOTEROL [Concomitant]
     Route: 048

REACTIONS (3)
  - DEPENDENCE [None]
  - INCORRECT DOSE ADMINISTERED [None]
  - MIGRAINE [None]
